FAERS Safety Report 5795746-7 (Version None)
Quarter: 2008Q2

REPORT INFORMATION
  Report Type: 
  Country: None (occurrence: None)
  Receive Date: 20080630
  Receipt Date: 20080619
  Transmission Date: 20081010
  Serious: Yes (Hospitalization)
  Sender: FDA-Public Use
  Company Number: US-ABBOTT-08P-163-0459715-00

PATIENT
  Age: 18 Year
  Sex: Female

DRUGS (3)
  1. RITONAVIR SOFT GELATIN CAPSULES [Suspect]
     Indication: HIV INFECTION
     Dosage: 250/100 MG, DAILY
  2. APTIVUS [Suspect]
     Indication: HIV INFECTION
     Dosage: 250/100 MG, DAILY
  3. TRUVADA [Concomitant]
     Indication: HIV INFECTION

REACTIONS (6)
  - ARTHRALGIA [None]
  - CRYPTOCOCCOSIS [None]
  - IMMUNE RECONSTITUTION SYNDROME [None]
  - JOINT SWELLING [None]
  - LIVER FUNCTION TEST ABNORMAL [None]
  - OSTEOMYELITIS [None]
